FAERS Safety Report 17211412 (Version 2)
Quarter: 2020Q1

REPORT INFORMATION
  Report Type: Spontaneous
  Country: DK (occurrence: DK)
  Receive Date: 20191228
  Receipt Date: 20200103
  Transmission Date: 20200409
  Serious: Yes (Other)
  Sender: FDA-Public Use
  Company Number: DK-MYLANLABS-2019M1130971

PATIENT
  Age: 44 Year
  Sex: Female
  Weight: 68 kg

DRUGS (4)
  1. CITALOPRAM [Suspect]
     Active Substance: CITALOPRAM HYDROBROMIDE
     Indication: ALCOHOL ABUSE
     Dosage: 10 MILLIGRAM
     Route: 065
  2. NALMEFENE [Suspect]
     Active Substance: NALMEFENE
     Indication: ALCOHOL ABUSE
     Dosage: UNK
  3. CITALOPRAM [Suspect]
     Active Substance: CITALOPRAM HYDROBROMIDE
     Indication: DEPRESSION
     Dosage: UNK
     Route: 065
  4. NALMEFENE [Suspect]
     Active Substance: NALMEFENE
     Indication: DEPRESSION
     Dosage: UNK
     Route: 048

REACTIONS (3)
  - Ideas of reference [Recovered/Resolved]
  - Psychotic symptom [Recovered/Resolved]
  - Hallucination, auditory [Recovered/Resolved]
